FAERS Safety Report 9834616 (Version 2)
Quarter: 2014Q1

REPORT INFORMATION
  Report Type: Report from Study
  Country: PL (occurrence: PL)
  Receive Date: 20140122
  Receipt Date: 20140122
  Transmission Date: 20141002
  Serious: Yes (Other)
  Sender: FDA-Public Use
  Company Number: PL-SA-2013SA132272

PATIENT
  Age: 54 Year
  Sex: Female

DRUGS (1)
  1. BLINDED THERAPY [Suspect]
     Indication: TYPE IIA HYPERLIPIDAEMIA
     Dates: start: 20120928

REACTIONS (1)
  - Alanine aminotransferase increased [Recovered/Resolved]
